FAERS Safety Report 12999484 (Version 3)
Quarter: 2017Q1

REPORT INFORMATION
  Report Type: Spontaneous
  Country: JP (occurrence: JP)
  Receive Date: 20161205
  Receipt Date: 20170209
  Transmission Date: 20170428
  Serious: Yes (Other)
  Sender: FDA-Public Use
  Company Number: JP-REGENERON PHARMACEUTICALS, INC.-2016-24656

PATIENT

DRUGS (1)
  1. EYLEA [Suspect]
     Active Substance: AFLIBERCEPT
     Indication: RETINAL VEIN OCCLUSION
     Dosage: 2 MG, ONCE
     Route: 031
     Dates: start: 20161116, end: 20161116

REACTIONS (3)
  - Punctate keratitis [Not Recovered/Not Resolved]
  - Keratitis [Unknown]
  - Corneal erosion [Recovered/Resolved with Sequelae]

NARRATIVE: CASE EVENT DATE: 20161117
